FAERS Safety Report 8850328 (Version 3)
Quarter: 2012Q4

REPORT INFORMATION
  Report Type: Report from Study
  Country: DE (occurrence: DE)
  Receive Date: 20121019
  Receipt Date: 20121120
  Transmission Date: 20130627
  Serious: Yes (Death, Hospitalization)
  Sender: FDA-Public Use
  Company Number: DE-ACTELION-A-US2012-72955

PATIENT
  Age: 79 Year
  Sex: Male

DRUGS (9)
  1. VENTAVIS [Suspect]
     Indication: PULMONARY ARTERIAL HYPERTENSION
     Dosage: 5 ?g, qid
     Route: 055
     Dates: start: 20110708, end: 20121017
  2. TORASEMIDE [Concomitant]
  3. ADENURIC [Concomitant]
  4. XARELTO [Concomitant]
  5. TAMSULIN [Concomitant]
  6. FOLIC ACID [Concomitant]
  7. VITAMIN D [Concomitant]
  8. FEBUXOSTAT [Concomitant]
  9. CORTICOSTEROIDS [Concomitant]

REACTIONS (6)
  - Death [Fatal]
  - Oesophageal neoplasm [Not Recovered/Not Resolved]
  - Oesophageal operation [Not Recovered/Not Resolved]
  - Oesophageal candidiasis [Not Recovered/Not Resolved]
  - General physical health deterioration [Not Recovered/Not Resolved]
  - Aphasia [Not Recovered/Not Resolved]
